FAERS Safety Report 9485222 (Version 3)
Quarter: 2013Q3

REPORT INFORMATION
  Report Type: Spontaneous
  Country: US (occurrence: US)
  Receive Date: 20130828
  Receipt Date: 20130923
  Transmission Date: 20140515
  Serious: Yes (Other)
  Sender: FDA-Public Use
  Company Number: CHPA2013US012936

PATIENT
  Sex: Male

DRUGS (3)
  1. VOLTAREN GEL [Suspect]
     Indication: PAIN
     Dosage: UNK, UNK
     Route: 061
     Dates: start: 2012, end: 20130813
  2. VOLTAREN GEL [Suspect]
     Indication: HYPOAESTHESIA
     Dosage: UNK, UNK
     Route: 061
     Dates: end: 20130813
  3. VOLTAREN GEL [Suspect]
     Indication: HYPOAESTHESIA

REACTIONS (5)
  - Gallbladder disorder [Recovered/Resolved]
  - Hypoaesthesia [Recovering/Resolving]
  - Pain in extremity [Recovering/Resolving]
  - Off label use [Unknown]
  - Drug administered at inappropriate site [Unknown]
